FAERS Safety Report 12452921 (Version 3)
Quarter: 2016Q4

REPORT INFORMATION
  Report Type: Spontaneous
  Country: US (occurrence: US)
  Receive Date: 20160609
  Receipt Date: 20161031
  Transmission Date: 20170207
  Serious: No
  Sender: FDA-Public Use
  Company Number: US-PFIZER INC-2015467120

PATIENT
  Age: 63 Year
  Sex: Female
  Weight: 50 kg

DRUGS (2)
  1. XELJANZ [Suspect]
     Active Substance: TOFACITINIB CITRATE
     Dosage: 5 MG, UNK
  2. XELJANZ [Suspect]
     Active Substance: TOFACITINIB CITRATE
     Indication: RHEUMATOID ARTHRITIS
     Dosage: 5 MG, 2X/DAY
     Dates: start: 201408, end: 201511

REACTIONS (9)
  - Weight fluctuation [Unknown]
  - Musculoskeletal chest pain [Unknown]
  - Intentional product misuse [Unknown]
  - Abdominal distension [Unknown]
  - Skin lesion [Unknown]
  - Drug ineffective [Unknown]
  - Rash [Unknown]
  - Pyrexia [Unknown]
  - White blood cell count decreased [Unknown]
